FAERS Safety Report 8902791 (Version 1)
Quarter: 2012Q4

REPORT INFORMATION
  Report Type: 
  Country: US (occurrence: US)
  Receive Date: 20121112
  Receipt Date: 20121112
  Transmission Date: 20130627
  Serious: No
  Sender: FDA-Public Use
  Company Number: US-009507513-1211USA002889

PATIENT
  Sex: Male

DRUGS (1)
  1. INTRONA [Suspect]
     Dosage: 5 million IU, q3w
     Route: 058
     Dates: start: 2010

REACTIONS (5)
  - Tremor [Recovering/Resolving]
  - Gait disturbance [Recovering/Resolving]
  - Camptocormia [Recovering/Resolving]
  - Parkinsonian gait [Recovering/Resolving]
  - Tremor [Recovering/Resolving]
